FAERS Safety Report 17132432 (Version 2)
Quarter: 2019Q4

REPORT INFORMATION
  Report Type: Spontaneous
  Country: FR (occurrence: FR)
  Receive Date: 20191210
  Receipt Date: 20191217
  Transmission Date: 20200122
  Serious: Yes (Other)
  Sender: FDA-Public Use
  Company Number: FR-ADVANZ PHARMA-201912002591

PATIENT

DRUGS (2)
  1. METFORMIN [Concomitant]
     Active Substance: METFORMIN HYDROCHLORIDE
     Indication: DIABETES MELLITUS
  2. ALFUZOSIN [Suspect]
     Active Substance: ALFUZOSIN
     Indication: PROSTATIC DISORDER
     Dosage: 1 DF ONCE DAILY,1 DOSAGE FORM, QD, TABLET
     Route: 065

REACTIONS (2)
  - Discomfort [Recovered/Resolved]
  - Foreign body in respiratory tract [Recovered/Resolved]

NARRATIVE: CASE EVENT DATE: 20191021
